FAERS Safety Report 9096848 (Version 1)
Quarter: 2013Q1

REPORT INFORMATION
  Report Type: Spontaneous
  Country: US (occurrence: US)
  Receive Date: 20130211
  Receipt Date: 20130211
  Transmission Date: 20140127
  Serious: Yes (Hospitalization)
  Sender: FDA-Public Use
  Company Number: PHEH2012US024676

PATIENT
  Age: 72 Year
  Sex: Male
  Weight: 170 kg

DRUGS (1)
  1. AFINITOR [Suspect]
     Indication: NEOPLASM MALIGNANT
     Dosage: 7.5 MG, DAILY
     Route: 048
     Dates: start: 20121115

REACTIONS (4)
  - Hypotension [Not Recovered/Not Resolved]
  - Dyspnoea [Not Recovered/Not Resolved]
  - Dermatitis allergic [Recovering/Resolving]
  - Stomatitis [Recovering/Resolving]
